FAERS Safety Report 6765626-9 (Version None)
Quarter: 2010Q2

REPORT INFORMATION
  Report Type: 
  Country: None (occurrence: None)
  Receive Date: 20100610
  Receipt Date: 20100610
  Transmission Date: 20101027
  Serious: Yes (Other)
  Sender: FDA-Public Use
  Company Number: None

PATIENT
  Age: 57 Year
  Sex: Female
  Weight: 89.3586 kg

DRUGS (1)
  1. ALLI [Suspect]
     Indication: WEIGHT INCREASED
     Dosage: 60 MG 3X'S D ORAL
     Route: 048
     Dates: start: 20100401, end: 20100601

REACTIONS (12)
  - ABNORMAL FAECES [None]
  - ACTIVITIES OF DAILY LIVING IMPAIRED [None]
  - APHAGIA [None]
  - BACK PAIN [None]
  - DIARRHOEA [None]
  - LETHARGY [None]
  - MALAISE [None]
  - NAUSEA [None]
  - NIGHT SWEATS [None]
  - PAIN [None]
  - PRURITUS [None]
  - WEIGHT DECREASED [None]
